FAERS Safety Report 15629849 (Version 1)
Quarter: 2018Q4

REPORT INFORMATION
  Report Type: Spontaneous
  Country: DE (occurrence: DE)
  Receive Date: 20181117
  Receipt Date: 20181117
  Transmission Date: 20190205
  Serious: Yes (Other)
  Sender: FDA-Public Use
  Company Number: PHHY2018DE152689

PATIENT
  Age: 46 Year
  Sex: Male

DRUGS (1)
  1. TRAMETINIB [Suspect]
     Active Substance: TRAMETINIB
     Indication: LANGERHANS^ CELL HISTIOCYTOSIS
     Dosage: 2 MG, QD
     Route: 065

REACTIONS (3)
  - Campylobacter gastroenteritis [Unknown]
  - Dermatitis acneiform [Recovered/Resolved]
  - Product use in unapproved indication [Unknown]
